FAERS Safety Report 25385216 (Version 2)
Quarter: 2025Q2

REPORT INFORMATION
  Report Type: Spontaneous
  Country: US (occurrence: US)
  Receive Date: 20250602
  Receipt Date: 20250623
  Transmission Date: 20250716
  Serious: No
  Sender: APOTEX
  Company Number: US-APOTEX-2025AP007525

PATIENT
  Sex: Female

DRUGS (1)
  1. RISEDRONATE SODIUM [Suspect]
     Active Substance: RISEDRONATE SODIUM
     Indication: Product used for unknown indication
     Dosage: UNK, Q.M.T.
     Route: 065

REACTIONS (2)
  - Product dose omission issue [Unknown]
  - Product packaging difficult to open [Unknown]
